FAERS Safety Report 22102704 (Version 1)
Quarter: 2023Q1

REPORT INFORMATION
  Report Type: Spontaneous
  Country: CN (occurrence: CN)
  Receive Date: 20230316
  Receipt Date: 20230316
  Transmission Date: 20230418
  Serious: Yes (Hospitalization, Other)
  Sender: FDA-Public Use
  Company Number: CN-009507513-2303CHN004380

PATIENT
  Age: 60 Year
  Sex: Male
  Weight: 66 kg

DRUGS (15)
  1. KEYTRUDA [Suspect]
     Active Substance: PEMBROLIZUMAB
     Indication: Lung neoplasm malignant
     Dosage: 200 MILLIGRAM, 100ML, ONCE
     Route: 041
     Dates: start: 20221013, end: 20221013
  2. KEYTRUDA [Suspect]
     Active Substance: PEMBROLIZUMAB
     Dosage: 200 MILLIGRAM, STRENGTH: 100ML, ONCE
     Route: 041
     Dates: start: 20221104, end: 20221104
  3. KEYTRUDA [Suspect]
     Active Substance: PEMBROLIZUMAB
     Dosage: 200 MILLIGRAM, 100ML, ONCE
     Route: 041
     Dates: start: 20230120, end: 20230120
  4. PARAPLATIN [Suspect]
     Active Substance: CARBOPLATIN
     Indication: Lung neoplasm malignant
     Dosage: 550 MILLIGRAM, ONCE
     Route: 041
     Dates: start: 20221013, end: 20221013
  5. PARAPLATIN [Suspect]
     Active Substance: CARBOPLATIN
     Dosage: 550 MILLIGRAM, ONCE
     Route: 041
     Dates: start: 20221104, end: 20221104
  6. PARAPLATIN [Suspect]
     Active Substance: CARBOPLATIN
     Dosage: 550 MILLIGRAM, ONCE
     Route: 041
     Dates: start: 20230120, end: 20230120
  7. PACLITAXEL [Suspect]
     Active Substance: PACLITAXEL
     Indication: Lung neoplasm malignant
     Dosage: 400 MILLIGRAM, ONCE
     Route: 041
     Dates: start: 20221013, end: 20221013
  8. PACLITAXEL [Suspect]
     Active Substance: PACLITAXEL
     Dosage: 400 MILLIGRAM, ONCE
     Route: 041
     Dates: start: 20221104, end: 20221104
  9. PACLITAXEL [Suspect]
     Active Substance: PACLITAXEL
     Dosage: 400 MILLIGRAM, ONCE
     Route: 041
     Dates: start: 20230120, end: 20230120
  10. DEXTROSE [Concomitant]
     Active Substance: DEXTROSE
     Dosage: 500 MILLILITER, ONCE
     Route: 041
     Dates: start: 20221013, end: 20221013
  11. DEXTROSE [Concomitant]
     Active Substance: DEXTROSE
     Dosage: 500 MILLILITER, ONCE
     Route: 041
     Dates: start: 20221104, end: 20221104
  12. DEXTROSE [Concomitant]
     Active Substance: DEXTROSE
     Dosage: 500 MILLILITER, ONCE
     Route: 041
     Dates: start: 20230120, end: 20230120
  13. SODIUM CHLORIDE [Concomitant]
     Active Substance: SODIUM CHLORIDE
     Dosage: 100 MILLILITER, ONCE
     Route: 041
     Dates: start: 20221013, end: 20221013
  14. SODIUM CHLORIDE [Concomitant]
     Active Substance: SODIUM CHLORIDE
     Dosage: 100 MILLILITER, ONCE
     Route: 041
     Dates: start: 20221104, end: 20221104
  15. SODIUM CHLORIDE [Concomitant]
     Active Substance: SODIUM CHLORIDE
     Dosage: 100 MILLILITER, ONCE
     Route: 041
     Dates: start: 20230120, end: 20230120

REACTIONS (6)
  - Blood creatinine increased [Recovering/Resolving]
  - Pneumonectomy [Unknown]
  - Lymphadenectomy [Unknown]
  - Malignant neoplasm progression [Unknown]
  - Renal failure [Unknown]
  - Inappropriate schedule of product administration [Unknown]

NARRATIVE: CASE EVENT DATE: 20221104
